FAERS Safety Report 5905070-7 (Version None)
Quarter: 2008Q3

REPORT INFORMATION
  Report Type: 
  Country: None (occurrence: None)
  Receive Date: 20080909
  Receipt Date: 20071218
  Transmission Date: 20090109
  Serious: Yes (Life-Threatening, Hospitalization)
  Sender: FDA-Public Use
  Company Number: 163-20785-07110885

PATIENT
  Age: 19 Year
  Sex: Female

DRUGS (4)
  1. THALOMID [Suspect]
     Indication: MEDULLOBLASTOMA
     Dosage: 300 MG, QD, ORAL
     Route: 048
     Dates: start: 20071022, end: 20071111
  2. ETOPOSIDE [Suspect]
     Indication: MEDULLOBLASTOMA
     Dosage: 77 MG, QD, ORAL
     Route: 048
     Dates: start: 20071022, end: 20071111
  3. CELEBREX [Concomitant]
  4. FENOFIBRATE [Concomitant]

REACTIONS (2)
  - INFECTION [None]
  - WHITE BLOOD CELL COUNT DECREASED [None]
